FAERS Safety Report 10872643 (Version 8)
Quarter: 2020Q1

REPORT INFORMATION
  Report Type: Spontaneous
  Country: BR (occurrence: BR)
  Receive Date: 20150227
  Receipt Date: 20200306
  Transmission Date: 20200409
  Serious: Yes (Other)
  Sender: FDA-Public Use
  Company Number: BR-AMGEN-BRASP2015017919

PATIENT
  Age: 51 Year
  Sex: Female
  Weight: 52 kg

DRUGS (2)
  1. ENBREL [Suspect]
     Active Substance: ETANERCEPT
     Dosage: 1 DOSAGE FORM, ONCE WEEKLY
     Route: 065
     Dates: start: 20191112
  2. ENBREL [Suspect]
     Active Substance: ETANERCEPT
     Indication: SPONDYLITIS
     Dosage: 1 DOSAGE FORM, ONCE WEEKLY
     Route: 065
     Dates: start: 2012, end: 201911

REACTIONS (15)
  - Device issue [Recovered/Resolved]
  - Wrong technique in device usage process [Recovered/Resolved]
  - Injection site vesicles [Unknown]
  - Fear of injection [Unknown]
  - Herpes virus infection [Unknown]
  - Injection site pruritus [Recovered/Resolved]
  - Headache [Not Recovered/Not Resolved]
  - Hypersensitivity [Recovered/Resolved]
  - Injection site discolouration [Recovered/Resolved]
  - Injection site haemorrhage [Not Recovered/Not Resolved]
  - Injection site haemorrhage [Recovered/Resolved]
  - Immunodeficiency [Not Recovered/Not Resolved]
  - Rash [Unknown]
  - Injection site pain [Recovered/Resolved]
  - Injection site erythema [Recovered/Resolved]

NARRATIVE: CASE EVENT DATE: 2013
